FAERS Safety Report 6883818-5 (Version None)
Quarter: 2010Q3

REPORT INFORMATION
  Report Type: 
  Country: None (occurrence: None)
  Receive Date: 20100727
  Receipt Date: 20100715
  Transmission Date: 20110219
  Serious: Yes (Death, Life-Threatening, Hospitalization)
  Sender: FDA-Public Use
  Company Number: JP-BAYER-201011122BYL

PATIENT
  Age: 68 Year
  Sex: Male
  Weight: 64 kg

DRUGS (20)
  1. NEXAVAR [Suspect]
     Indication: HEPATIC NEOPLASM MALIGNANT
     Dosage: TOTAL DAILY DOSE: 800 MG  UNIT DOSE: 200 MG
     Route: 048
     Dates: start: 20090723, end: 20090903
  2. NEXAVAR [Suspect]
     Dosage: UNIT DOSE: 200 MG
     Route: 048
     Dates: start: 20091005, end: 20091017
  3. NEXAVAR [Suspect]
     Dosage: UNIT DOSE: 200 MG
     Route: 048
     Dates: start: 20091117, end: 20091201
  4. NEXAVAR [Suspect]
     Dosage: UNIT DOSE: 200 MG
     Route: 048
     Dates: start: 20091112, end: 20091114
  5. CAPTOPRIL [Concomitant]
     Indication: HYPERTENSION
     Route: 048
     Dates: start: 20090820
  6. BIOFERMIN [Concomitant]
     Indication: DISBACTERIOSIS
     Dosage: SINCE BEFORE ADMINISTRATION
     Route: 048
     Dates: end: 20091201
  7. URSO 250 [Concomitant]
     Dosage: UNIT DOSE: 100 MG
     Route: 048
     Dates: end: 20091017
  8. AMLODIPINE [Concomitant]
     Dosage: UNIT DOSE: 5 MG
     Route: 048
     Dates: end: 20091017
  9. TAKEPRON [Concomitant]
     Indication: GASTRITIS PROPHYLAXIS
     Dosage: UNIT DOSE: 15 MG
     Route: 048
     Dates: end: 20091201
  10. BLOPRESS [Concomitant]
     Dosage: UNIT DOSE: 8 MG
     Route: 048
     Dates: end: 20091201
  11. SM [Concomitant]
     Indication: GASTRITIS PROPHYLAXIS
     Dosage: UNIT DOSE: 1.3 G
     Route: 048
     Dates: end: 20091201
  12. ASPARA POTASSIUM [Concomitant]
     Dosage: UNIT DOSE: 300 MG
     Route: 048
     Dates: end: 20091017
  13. ZYLORIC [Concomitant]
     Dosage: UNIT DOSE: 100 MG
     Route: 048
     Dates: end: 20091017
  14. LENDORMIN [Concomitant]
     Dosage: UNIT DOSE: 0.25 MG
     Route: 048
  15. ISODINE GARGLE [Concomitant]
     Indication: DENTAL DISORDER PROPHYLAXIS
     Dosage: SINCE BEFORE ADMINISTRATION
     Route: 049
  16. PATANOL [Concomitant]
     Dosage: SINCE BEFORE ADMINISTRATION
     Route: 031
  17. UREPEARL [Concomitant]
     Indication: PROPHYLAXIS
     Route: 061
     Dates: start: 20090722
  18. HIRUDOID [Concomitant]
     Indication: PROPHYLAXIS
     Route: 061
     Dates: start: 20090723
  19. NAUZELIN [Concomitant]
     Indication: ANTIEMETIC SUPPORTIVE CARE
     Dosage: UNIT DOSE: 10 MG
     Route: 048
     Dates: start: 20090911, end: 20091019
  20. NAUZELIN [Concomitant]
     Dosage: UNIT DOSE: 30 MG
     Route: 054
     Dates: start: 20090730, end: 20090730

REACTIONS (15)
  - ABDOMINAL PAIN [None]
  - ASCITES [None]
  - DIARRHOEA [None]
  - DISEASE PROGRESSION [None]
  - GASTROINTESTINAL HAEMORRHAGE [None]
  - HEPATIC FUNCTION ABNORMAL [None]
  - HEPATIC NEOPLASM MALIGNANT [None]
  - HEPATORENAL SYNDROME [None]
  - HYPERTENSION [None]
  - HYPOALBUMINAEMIA [None]
  - HYPOPROTHROMBINAEMIA [None]
  - JAUNDICE [None]
  - PALMAR-PLANTAR ERYTHRODYSAESTHESIA SYNDROME [None]
  - PYREXIA [None]
  - RENAL DISORDER [None]
